FAERS Safety Report 13009600 (Version 1)
Quarter: 2016Q4

REPORT INFORMATION
  Report Type: Report from Study
  Country: US (occurrence: US)
  Receive Date: 20161208
  Receipt Date: 20161208
  Transmission Date: 20170207
  Serious: Yes (Disabling)
  Sender: FDA-Public Use
  Company Number: US-MALLINCKRODT-T201606333

PATIENT
  Age: 52 Year
  Sex: Female

DRUGS (3)
  1. UVADEX [Suspect]
     Active Substance: METHOXSALEN
     Dosage: TWICE EVERY 6 WEEKS
     Route: 057
  2. UVADEX [Suspect]
     Active Substance: METHOXSALEN
     Indication: MYCOSIS FUNGOIDES
     Dosage: 2 DAYS IN ROW EVERY 2 WEEKS
     Route: 057
     Dates: start: 201209
  3. UVADEX [Suspect]
     Active Substance: METHOXSALEN
     Dosage: 2 DAYS IN ROW EVERY 4 WEEKS
     Route: 057

REACTIONS (5)
  - Contusion [Unknown]
  - Rash [Unknown]
  - Fatigue [Unknown]
  - Pruritus [Unknown]
  - Musculoskeletal disorder [Not Recovered/Not Resolved]

NARRATIVE: CASE EVENT DATE: 20150901
